FAERS Safety Report 12555032 (Version 1)
Quarter: 2016Q3

REPORT INFORMATION
  Report Type: Spontaneous
  Country: US (occurrence: US)
  Receive Date: 20160714
  Receipt Date: 20160714
  Transmission Date: 20161109
  Serious: Yes (Other)
  Sender: FDA-Public Use
  Company Number: US-CIPLA-2014US00224

PATIENT

DRUGS (5)
  1. TEMOZOLOMIDE. [Suspect]
     Active Substance: TEMOZOLOMIDE
     Indication: CLEAR CELL SARCOMA OF SOFT TISSUE
     Dosage: 150 MG/M2/DAY ON DAYS 1TO 5, EVERY 3 WEEK CYCLE
     Route: 048
  2. BEVACIZUMAB [Suspect]
     Active Substance: BEVACIZUMAB
     Indication: CLEAR CELL SARCOMA OF SOFT TISSUE
     Dosage: 15 MG/KG, OVER 90 MINUTES ON DAY 1, EVERY 3 WEEK CYCLE
     Route: 065
  3. CEFIXIME. [Concomitant]
     Active Substance: CEFIXIME
     Indication: PROPHYLAXIS AGAINST DIARRHOEA
     Dosage: 8 MG/KG, QD 10 DAYS STARTING 2 DAYS BEFORE EACH CHEMOTHERAPY CYCLE
     Route: 065
  4. IRINOTECAN [Suspect]
     Active Substance: IRINOTECAN
     Indication: CLEAR CELL SARCOMA OF SOFT TISSUE
     Dosage: 90 MG/M2/DAY ON DAYS 1 TO 5, EVERY 3 WEEK CYCLE
     Route: 048
  5. VINCRISTINE [Suspect]
     Active Substance: VINCRISTINE
     Indication: CLEAR CELL SARCOMA OF SOFT TISSUE
     Dosage: 1.5 MG/M2, OVER 1 MINUTE ON DAY 1, EVERY 3 WEEK CYCLE
     Route: 042

REACTIONS (2)
  - Disease progression [Unknown]
  - Diarrhoea [Unknown]
